FAERS Safety Report 6064044-9 (Version None)
Quarter: 2009Q1

REPORT INFORMATION
  Report Type: 
  Country: None (occurrence: None)
  Receive Date: 20090130
  Receipt Date: 20090122
  Transmission Date: 20090719
  Serious: Yes (Other)
  Sender: FDA-Public Use
  Company Number: CIO09001400

PATIENT
  Age: 63 Year
  Sex: Female
  Weight: 73.9 kg

DRUGS (4)
  1. EARLY DEFENSE NASAL DECONGESTANT (PIDOLIC ACID 0.51%, OXYMETAZOLINE HY [Suspect]
     Dosage: INTRANASAL
     Route: 045
     Dates: start: 20090116, end: 20090116
  2. TEGRETOL-XR [Suspect]
     Dosage: ORAL
     Route: 048
  3. LOPERAMIDE [Concomitant]
  4. SYMBICORT [Concomitant]

REACTIONS (8)
  - CONDITION AGGRAVATED [None]
  - CONTUSION [None]
  - DRUG INTERACTION [None]
  - EYE SWELLING [None]
  - FACE INJURY [None]
  - FALL [None]
  - GRAND MAL CONVULSION [None]
  - PERIORBITAL HAEMATOMA [None]
